FAERS Safety Report 9797138 (Version 1)
Quarter: 2014Q1

REPORT INFORMATION
  Report Type: Spontaneous
  Country: US (occurrence: None)
  Receive Date: 20140102
  Receipt Date: 20140102
  Transmission Date: 20141002
  Serious: Yes (Other)
  Sender: FDA-Public Use
  Company Number: None

PATIENT
  Age: 59 Year
  Sex: Male
  Weight: 77.11 kg

DRUGS (1)
  1. WELCHOL [Suspect]
     Dosage: 1 3.75 G PACKET DAILY
     Route: 048
     Dates: start: 20130320, end: 20130820

REACTIONS (3)
  - Constipation [None]
  - Impaired gastric emptying [None]
  - Abdominal distension [None]
